FAERS Safety Report 6698381-1 (Version None)
Quarter: 2010Q2

REPORT INFORMATION
  Report Type: 
  Country: None (occurrence: None)
  Receive Date: 20100427
  Receipt Date: 20100419
  Transmission Date: 20101027
  Serious: Yes (Death, Hospitalization)
  Sender: FDA-Public Use
  Company Number: JP-ROCHE-662652

PATIENT
  Sex: Male

DRUGS (21)
  1. TOCILIZUMAB [Suspect]
     Indication: RHEUMATOID ARTHRITIS
     Route: 041
     Dates: start: 20081006, end: 20081006
  2. TOCILIZUMAB [Suspect]
     Route: 041
     Dates: start: 20081103, end: 20081103
  3. TOCILIZUMAB [Suspect]
     Route: 041
     Dates: start: 20081201, end: 20081201
  4. TOCILIZUMAB [Suspect]
     Route: 041
     Dates: start: 20081229, end: 20081229
  5. TOCILIZUMAB [Suspect]
     Route: 041
     Dates: start: 20090126, end: 20090126
  6. TOCILIZUMAB [Suspect]
     Route: 041
     Dates: start: 20090223, end: 20090223
  7. TOCILIZUMAB [Suspect]
     Route: 041
     Dates: start: 20090324, end: 20090324
  8. TOCILIZUMAB [Suspect]
     Route: 041
     Dates: start: 20090420, end: 20090420
  9. TOCILIZUMAB [Suspect]
     Route: 041
     Dates: start: 20090518, end: 20090518
  10. TOCILIZUMAB [Suspect]
     Route: 041
     Dates: start: 20090615, end: 20090615
  11. TOCILIZUMAB [Suspect]
     Route: 041
     Dates: start: 20090713, end: 20090713
  12. TOCILIZUMAB [Suspect]
     Route: 041
     Dates: start: 20090810, end: 20090810
  13. TOCILIZUMAB [Suspect]
     Route: 041
     Dates: start: 20090910, end: 20090910
  14. BREDININ [Suspect]
     Indication: RHEUMATOID ARTHRITIS
     Route: 048
     Dates: start: 20081211
  15. PREDONINE [Suspect]
     Indication: RHEUMATOID ARTHRITIS
     Route: 048
  16. AZULFIDINE [Concomitant]
     Dosage: DOSE FORM ENTERIC.
     Route: 048
     Dates: end: 20081210
  17. LOPEMIN [Concomitant]
     Dosage: DOSE FORM ORAL FORMULATION.
     Route: 048
  18. BIOFERMIN [Concomitant]
     Route: 048
  19. LENDORMIN [Concomitant]
     Route: 048
  20. TAKEPRON [Concomitant]
     Route: 048
  21. KETOPROFEN [Concomitant]
     Dosage: DOSE FORM REPORTED AS TAPE.
     Route: 061

REACTIONS (2)
  - PNEUMONIA [None]
  - RESPIRATORY FAILURE [None]
